FAERS Safety Report 24037310 (Version 1)
Quarter: 2024Q3

REPORT INFORMATION
  Report Type: Spontaneous
  Country: GB (occurrence: GB)
  Receive Date: 20240702
  Receipt Date: 20240702
  Transmission Date: 20241017
  Serious: Yes (Disabling, Other)
  Sender: NOVO NORDISK
  Company Number: None

PATIENT
  Sex: Female
  Weight: 81 kg

DRUGS (1)
  1. OZEMPIC [Suspect]
     Active Substance: SEMAGLUTIDE
     Indication: Type 2 diabetes mellitus
     Dosage: 0.25
     Dates: start: 20200711, end: 20200728

REACTIONS (5)
  - Vomiting projectile [Not Recovered/Not Resolved]
  - Tooth loss [Not Recovered/Not Resolved]
  - Depression [Not Recovered/Not Resolved]
  - Tooth loss [Not Recovered/Not Resolved]
  - Impaired gastric emptying [Not Recovered/Not Resolved]
